FAERS Safety Report 6550910-4 (Version None)
Quarter: 2010Q1

REPORT INFORMATION
  Report Type: 
  Country: None (occurrence: None)
  Receive Date: 20100125
  Receipt Date: 20100111
  Transmission Date: 20100710
  Serious: Yes (Other)
  Sender: FDA-Public Use
  Company Number: US-MYLANLABS-2010S1000425

PATIENT
  Age: 67 Year
  Sex: Female

DRUGS (2)
  1. METOPROLOL [Suspect]
     Indication: HYPERTENSION
     Dosage: 50MG TWICE DAILY
  2. DIPYRIDAMOLE [Suspect]
     Indication: CARDIAC PHARMACOLOGIC STRESS TEST
     Route: 041

REACTIONS (1)
  - CARDIAC ARREST [None]
